FAERS Safety Report 15410167 (Version 2)
Quarter: 2018Q3

REPORT INFORMATION
  Report Type: Report from Study
  Country: None (occurrence: US)
  Receive Date: 20180921
  Receipt Date: 20180925
  Transmission Date: 20181010
  Serious: Yes (Hospitalization)
  Sender: FDA-Public Use
  Company Number: US-ABBVIE-18S-163-2488663-00

PATIENT
  Age: 72 Year
  Sex: Female
  Weight: 64.47 kg

DRUGS (7)
  1. SYNTHROID [Suspect]
     Active Substance: LEVOTHYROXINE SODIUM
     Indication: HYPOTHYROIDISM
     Route: 048
     Dates: start: 2015, end: 20180911
  2. MAGNESIUM OXIDE. [Concomitant]
     Active Substance: MAGNESIUM OXIDE
     Indication: MINERAL SUPPLEMENTATION
  3. SYNTHROID [Suspect]
     Active Substance: LEVOTHYROXINE SODIUM
     Route: 048
     Dates: start: 20180912
  4. CALCIUM LACTATE [Concomitant]
     Active Substance: CALCIUM LACTATE
     Indication: MINERAL SUPPLEMENTATION
  5. VITAMIN B?6 [Concomitant]
     Active Substance: PYRIDOXINE
     Indication: CALCIUM METABOLISM DISORDER
  6. CALCITRIOL. [Concomitant]
     Active Substance: CALCITRIOL
     Indication: VITAMIN SUPPLEMENTATION
  7. HYDROCHLOROTHIAZIDE. [Suspect]
     Active Substance: HYDROCHLOROTHIAZIDE
     Indication: HYPERTENSION
     Route: 048
     Dates: start: 2014, end: 201807

REACTIONS (9)
  - Lip swelling [Recovered/Resolved]
  - Swelling [Recovered/Resolved]
  - Hypoaesthesia [Unknown]
  - Urticaria [Not Recovered/Not Resolved]
  - Blood calcium decreased [Unknown]
  - Swelling face [Recovered/Resolved]
  - Lip swelling [Unknown]
  - Hypoaesthesia [Recovered/Resolved]
  - Rash [Not Recovered/Not Resolved]

NARRATIVE: CASE EVENT DATE: 2018
